FAERS Safety Report 8369077-5 (Version None)
Quarter: 2012Q2

REPORT INFORMATION
  Report Type: 
  Country: None (occurrence: None)
  Receive Date: 20120516
  Receipt Date: 20120516
  Transmission Date: 20120825
  Serious: Yes (Other)
  Sender: FDA-Public Use
  Company Number: None

PATIENT
  Age: 61 Year
  Sex: Female
  Weight: 57.6068 kg

DRUGS (1)
  1. BONIVA [Suspect]
     Indication: OSTEOPOROSIS
     Dosage: UNKNOWN ONCE EVERY 3 MONTH IV BOLUS
     Route: 040
     Dates: start: 20120104, end: 20120404

REACTIONS (11)
  - FOOD POISONING [None]
  - PYREXIA [None]
  - ORAL FUNGAL INFECTION [None]
  - FUNGAL INFECTION [None]
  - VOMITING [None]
  - INFLUENZA LIKE ILLNESS [None]
  - FATIGUE [None]
  - NIGHT SWEATS [None]
  - LETHARGY [None]
  - URINARY TRACT INFECTION [None]
  - ABDOMINAL PAIN UPPER [None]
